FAERS Safety Report 7429328-8 (Version None)
Quarter: 2011Q2

REPORT INFORMATION
  Report Type: 
  Country: None (occurrence: None)
  Receive Date: 20110421
  Receipt Date: 20110413
  Transmission Date: 20111010
  Serious: Yes (Hospitalization)
  Sender: FDA-Public Use
  Company Number: US-GILEAD-2010-0033561

PATIENT
  Sex: Female

DRUGS (5)
  1. LETAIRIS [Suspect]
     Indication: SLEEP APNOEA SYNDROME
  2. LETAIRIS [Suspect]
     Indication: CHRONIC OBSTRUCTIVE PULMONARY DISEASE
  3. LETAIRIS [Suspect]
     Indication: PULMONARY HYPERTENSION
     Route: 048
     Dates: start: 20101104
  4. LETAIRIS [Suspect]
     Indication: VENOOCCLUSIVE DISEASE
  5. VIAGRA [Concomitant]

REACTIONS (8)
  - HYPOXIA [None]
  - FATIGUE [None]
  - DECREASED APPETITE [None]
  - ABDOMINAL DISCOMFORT [None]
  - RESPIRATORY FAILURE [None]
  - DIZZINESS [None]
  - PNEUMONIA [None]
  - PRODUCTIVE COUGH [None]
